FAERS Safety Report 11872352 (Version 1)
Quarter: 2015Q4

REPORT INFORMATION
  Report Type: Spontaneous
  Country: US (occurrence: None)
  Receive Date: 20151224
  Receipt Date: 20151224
  Transmission Date: 20160305
  Serious: Yes (Hospitalization, Disabling)
  Sender: FDA-Public Use
  Company Number: None

PATIENT
  Age: 26 Year
  Sex: Male
  Weight: 74.84 kg

DRUGS (5)
  1. CIPROFLOXACIN ORAL 500MG CIPROFLOXACIN 500MG [Suspect]
     Active Substance: CIPROFLOXACIN
     Indication: DIARRHOEA INFECTIOUS
     Dosage: 12 PILLS
     Route: 048
     Dates: start: 20151202, end: 20151203
  2. ZYRTEC [Concomitant]
     Active Substance: CETIRIZINE HYDROCHLORIDE
  3. PROBIOTIC [Concomitant]
     Active Substance: PROBIOTICS NOS
  4. DAILY MULTIVITAMINS [Concomitant]
  5. MAGNESIUM SULFATE. [Concomitant]
     Active Substance: MAGNESIUM SULFATE

REACTIONS (9)
  - Tinnitus [None]
  - Fatigue [None]
  - Malaise [None]
  - Tendon pain [None]
  - Insomnia [None]
  - Weight bearing difficulty [None]
  - Neuropathy peripheral [None]
  - Tendonitis [None]
  - Muscular weakness [None]

NARRATIVE: CASE EVENT DATE: 20151211
